FAERS Safety Report 19029708 (Version 1)
Quarter: 2021Q1

REPORT INFORMATION
  Report Type: Report from Study
  Country: US (occurrence: US)
  Receive Date: 20210319
  Receipt Date: 20210319
  Transmission Date: 20210420
  Serious: Yes (Death, Other)
  Sender: FDA-Public Use
  Company Number: US-JNJFOC-20210324497

PATIENT

DRUGS (1)
  1. DARATUMUMAB [Suspect]
     Active Substance: DARATUMUMAB
     Indication: PRIMARY AMYLOIDOSIS
     Route: 065

REACTIONS (6)
  - Infusion related reaction [Unknown]
  - Gastroenteritis viral [Unknown]
  - Viral upper respiratory tract infection [Unknown]
  - Pneumonia [Unknown]
  - Septic shock [Fatal]
  - Cellulitis [Unknown]
